FAERS Safety Report 6914700-2 (Version None)
Quarter: 2010Q3

REPORT INFORMATION
  Report Type: 
  Country: None (occurrence: None)
  Receive Date: 20100809
  Receipt Date: 20100801
  Transmission Date: 20110219
  Serious: Yes (Other)
  Sender: FDA-Public Use
  Company Number: US-SANOFI-AVENTIS-2010SA045868

PATIENT
  Sex: Male

DRUGS (4)
  1. LANTUS [Suspect]
     Dosage: DOSE:25 UNIT(S)
     Route: 058
  2. APIDRA [Suspect]
  3. OPTICLICK [Suspect]
  4. OPTICLICK [Suspect]

REACTIONS (1)
  - ADDISON'S DISEASE [None]
